FAERS Safety Report 5391575-7 (Version None)
Quarter: 2007Q3

REPORT INFORMATION
  Report Type: 
  Country: None (occurrence: None)
  Receive Date: 20070717
  Receipt Date: 20070702
  Transmission Date: 20080115
  Serious: Yes (Life-Threatening, Hospitalization)
  Sender: FDA-Public Use
  Company Number: 100#08#2007-02476

PATIENT
  Age: 9 Year
  Sex: Female

DRUGS (3)
  1. METHOTREXATE [Suspect]
     Indication: JUVENILE ARTHRITIS
     Dosage: 2.5- 12.5 MG (WEEKLY)
  2. PREDNISONE [Concomitant]
  3. NAPROXEN [Concomitant]

REACTIONS (2)
  - EPSTEIN-BARR VIRUS INFECTION [None]
  - HODGKIN'S DISEASE [None]
